FAERS Safety Report 5843092-5 (Version None)
Quarter: 2008Q3

REPORT INFORMATION
  Report Type: 
  Country: None (occurrence: None)
  Receive Date: 20080812
  Receipt Date: 20080812
  Transmission Date: 20090109
  Serious: Yes (Hospitalization)
  Sender: FDA-Public Use
  Company Number: None

PATIENT
  Age: 37 Year
  Sex: Female
  Weight: 61.2356 kg

DRUGS (3)
  1. CLOPIDOGREL [Suspect]
     Indication: CATHETER RELATED COMPLICATION
     Dosage: 75MG  1X DAILY PO
     Route: 048
     Dates: start: 20080624, end: 20080805
  2. ASPIRIN [Concomitant]
  3. FLUCTICASONE [Concomitant]

REACTIONS (1)
  - HEPATITIS [None]
